FAERS Safety Report 11795350 (Version 2)
Quarter: 2015Q4

REPORT INFORMATION
  Report Type: Report from Study
  Country: GB (occurrence: GB)
  Receive Date: 20151202
  Receipt Date: 20151205
  Transmission Date: 20160305
  Serious: Yes (Death, Hospitalization, Other)
  Sender: FDA-Public Use
  Company Number: GB-GILEAD-2015-0182719

PATIENT
  Age: 70 Year
  Sex: Male

DRUGS (3)
  1. IDELALISIB [Suspect]
     Active Substance: IDELALISIB
     Indication: NON-HODGKIN^S LYMPHOMA UNSPECIFIED HISTOLOGY INDOLENT
     Dosage: 150 MG, BID
     Route: 048
     Dates: start: 20141110, end: 20151115
  2. RITUXIMAB [Suspect]
     Active Substance: RITUXIMAB
     Indication: NON-HODGKIN^S LYMPHOMA UNSPECIFIED HISTOLOGY INDOLENT
     Dosage: 700 MG, CYCLICAL
     Route: 042
     Dates: start: 20141110, end: 20150302
  3. BENDAMUSTINE [Suspect]
     Active Substance: BENDAMUSTINE
     Indication: NON-HODGKIN^S LYMPHOMA UNSPECIFIED HISTOLOGY INDOLENT
     Dosage: 175 MG, CYCLICAL
     Route: 042
     Dates: start: 20141110, end: 20150303

REACTIONS (7)
  - Cardiac failure [None]
  - Pleural effusion [None]
  - Pneumonia [None]
  - Lower respiratory tract infection [None]
  - Lung infection [Recovered/Resolved]
  - Cardiomegaly [None]
  - Fluid overload [None]

NARRATIVE: CASE EVENT DATE: 20151111
